FAERS Safety Report 9096611 (Version 1)
Quarter: 2013Q1

REPORT INFORMATION
  Report Type: Spontaneous
  Country: DE (occurrence: DE)
  Receive Date: 20130211
  Receipt Date: 20130211
  Transmission Date: 20140127
  Serious: Yes (Hospitalization)
  Sender: FDA-Public Use
  Company Number: DE-BAYER-2013-015740

PATIENT
  Age: 40 Year
  Sex: Female

DRUGS (3)
  1. INTERFERON BETA - 1B [Suspect]
     Indication: RELAPSING-REMITTING MULTIPLE SCLEROSIS
  2. LEVOTHYROXINE [Concomitant]
  3. POTASSIUM IODIDE [Concomitant]

REACTIONS (3)
  - Proteinuria [Recovering/Resolving]
  - Glomerulonephritis membranoproliferative [None]
  - Glomerulonephritis membranoproliferative [None]
